FAERS Safety Report 4775034-8 (Version None)
Quarter: 2005Q3

REPORT INFORMATION
  Report Type: 
  Country: None (occurrence: None)
  Receive Date: 20050920
  Receipt Date: 20050909
  Transmission Date: 20060218
  Serious: Yes (Hospitalization)
  Sender: FDA-Public Use
  Company Number: 2004193459JP

PATIENT
  Age: 39 Year
  Sex: Male
  Weight: 101 kg

DRUGS (7)
  1. GENOTROPIN [Suspect]
     Indication: HYPOPITUITARISM
     Dosage: 0.2 + 01. MG (0.2 MG, DAILY), SUBCUTANEOUS
     Route: 058
     Dates: start: 20030730, end: 20040113
  2. GENOTROPIN [Suspect]
     Indication: HYPOPITUITARISM
     Dosage: 0.2 + 01. MG (0.2 MG, DAILY), SUBCUTANEOUS
     Route: 058
     Dates: start: 20040120, end: 20040304
  3. PREDNISOLONE [Concomitant]
  4. ADETPHOS (ADENOSINE TRIPHOSPHATE, DISODIUM SALT) [Concomitant]
  5. METHYCOBAL (MECOBALAMIN) [Concomitant]
  6. MUCOSTA (REBAMIPIDE) [Concomitant]
  7. FAMOTIDINE [Concomitant]

REACTIONS (5)
  - BACK PAIN [None]
  - BRAIN NEOPLASM [None]
  - DEAFNESS UNILATERAL [None]
  - INTERVERTEBRAL DISC PROTRUSION [None]
  - SUDDEN HEARING LOSS [None]
